FAERS Safety Report 7706964-2 (Version None)
Quarter: 2011Q3

REPORT INFORMATION
  Report Type: 
  Country: None (occurrence: None)
  Receive Date: 20110824
  Receipt Date: 20110818
  Transmission Date: 20111222
  Serious: No
  Sender: FDA-Public Use
  Company Number: US-PFIZER INC-2011193428

PATIENT
  Sex: Female

DRUGS (1)
  1. ZITHROMAX [Suspect]
     Dosage: 500 ONCE DAILY (DOSE UNITS NOT PROVIDED)

REACTIONS (1)
  - DRUG LEVEL BELOW THERAPEUTIC [None]
